FAERS Safety Report 6189069-4 (Version None)
Quarter: 2009Q2

REPORT INFORMATION
  Report Type: 
  Country: None (occurrence: None)
  Receive Date: 20090512
  Receipt Date: 20090427
  Transmission Date: 20091009
  Serious: Yes (Death, Hospitalization)
  Sender: FDA-Public Use
  Company Number: 2008BM000202

PATIENT
  Age: 18 Year
  Sex: Male
  Weight: 20.6 kg

DRUGS (6)
  1. NAGLAZYME [Suspect]
     Indication: MUCOPOLYSACCHARIDOSIS VI
     Dosage: 25 MG; QW; IVDRIP
     Route: 041
     Dates: start: 20080901, end: 20080924
  2. NAGLAZYME [Suspect]
     Indication: MUCOPOLYSACCHARIDOSIS VI
     Dosage: 25 MG; QW; IVDRIP
     Route: 041
     Dates: start: 20090210, end: 20090210
  3. CETIRIZINE [Concomitant]
  4. DIGOXIN [Concomitant]
  5. CAPTOPRIL [Concomitant]
  6. FUROSEMIDE [Concomitant]

REACTIONS (9)
  - CARDIAC FAILURE [None]
  - CONDITION AGGRAVATED [None]
  - HAEMODYNAMIC INSTABILITY [None]
  - HYPERTHERMIA [None]
  - LOBAR PNEUMONIA [None]
  - PNEUMONIA BACTERIAL [None]
  - PULMONARY HYPERTENSION [None]
  - RESPIRATORY FAILURE [None]
  - RESPIRATORY TRACT INFECTION [None]
